FAERS Safety Report 6550355-7 (Version None)
Quarter: 2010Q1

REPORT INFORMATION
  Report Type: 
  Country: None (occurrence: None)
  Receive Date: 20100125
  Receipt Date: 20100115
  Transmission Date: 20100710
  Serious: Yes (Death)
  Sender: FDA-Public Use
  Company Number: US-JNJFOC-20100105631

PATIENT
  Age: 31 Year
  Sex: Female

DRUGS (2)
  1. TRAMADOL [Suspect]
     Indication: DRUG USE FOR UNKNOWN INDICATION
     Route: 051
  2. FUROSEMIDE [Suspect]
     Indication: DRUG USE FOR UNKNOWN INDICATION
     Route: 051

REACTIONS (2)
  - DRUG TOXICITY [None]
  - MEDICATION ERROR [None]
